FAERS Safety Report 5264687-6 (Version None)
Quarter: 2007Q1

REPORT INFORMATION
  Report Type: 
  Country: None (occurrence: None)
  Receive Date: 20061117
  Receipt Date: 20051128
  Transmission Date: 20070707
  Serious: Yes (Other)
  Sender: FDA-Public Use
  Company Number: US-JNJFOC-20051001458

PATIENT
  Age: 45 Year
  Sex: Female
  Weight: 92.0802 kg

DRUGS (1)
  1. LEVAQUIN [Suspect]
     Indication: BRONCHITIS
     Dosage: 500 MG, 1 IN 1 DAY, ORAL
     Route: 048
     Dates: start: 20050930

REACTIONS (3)
  - COUGH [None]
  - ERYTHEMA [None]
  - RESPIRATORY DISTRESS [None]
